FAERS Safety Report 18843017 (Version 1)
Quarter: 2021Q1

REPORT INFORMATION
  Report Type: Spontaneous
  Country: GB (occurrence: GB)
  Receive Date: 20210203
  Receipt Date: 20210203
  Transmission Date: 20210419
  Serious: Yes (Death, Hospitalization)
  Sender: FDA-Public Use
  Company Number: GB-TEVA-2021-GB-1872696

PATIENT
  Age: 54 Year
  Sex: Female
  Weight: 74 kg

DRUGS (36)
  1. CEFTAZIDIME. [Interacting]
     Active Substance: CEFTAZIDIME
     Dosage: 3.75 GRAM DAILY; UNIT DOSE : 1.25 G
     Route: 042
  2. CHLORPHENAMINE [Concomitant]
     Active Substance: CHLORPHENIRAMINE MALEATE
     Dosage: 4MG AS NECESSARY (PRN) (ITCHING WITH INTRAVENOUS ANTIBIOTICS (IV ABX)),
  3. ONDANSETRON HYDROCHLORIDE. [Concomitant]
     Active Substance: ONDANSETRON HYDROCHLORIDE
     Route: 048
  4. CALCICHEW D3 [Concomitant]
     Active Substance: CALCIUM\CHOLECALCIFEROL
     Dosage: TBD
  5. CEFTAZIDIME. [Concomitant]
     Active Substance: CEFTAZIDIME
     Dosage: 6 GRAM DAILY; UNIT DOSE : 2 GRAM
  6. CEFTAZIDIME. [Interacting]
     Active Substance: CEFTAZIDIME
     Dosage: 7.5 GRAM DAILY; UNIT DOSE : 2.5 GRAM
  7. TACROLIMUS. [Concomitant]
     Active Substance: TACROLIMUS
  8. TINZAPARIN SODIUM [Concomitant]
     Active Substance: TINZAPARIN SODIUM
  9. VALGANCICLOVIR. [Concomitant]
     Active Substance: VALGANCICLOVIR
     Dosage: UNIT DOSE : 450 MG
  10. MEROPENEM. [Interacting]
     Active Substance: MEROPENEM
     Dosage: 4 GRAM DAILY; UNIT DOSE : 2 GRAM
     Dates: start: 20200131
  11. TIGECYCLINE. [Interacting]
     Active Substance: TIGECYCLINE
     Indication: LUNG ABSCESS
     Dosage: 100 MILLIGRAM DAILY; UNIT DOSE : 50 MG
     Route: 042
     Dates: start: 20200125, end: 20200205
  12. LEVOMEPROMAZINE [Concomitant]
     Active Substance: LEVOMEPROMAZINE
     Dosage: 25 MILLIGRAM DAILY; UNIT DOSE : 6.25 MG, (NASUEA WITH INTRAVENOUS ANTIBIOTICS (IV ABX))
     Route: 048
  13. LORAZEPAM. [Concomitant]
     Active Substance: LORAZEPAM
     Dosage: 500 MICROGRAM DAILY; AS NECESSARY (PRN)
  14. PREDNISOLON [Concomitant]
     Active Substance: PREDNISOLONE
  15. OMEPRAZOLE. [Concomitant]
     Active Substance: OMEPRAZOLE
     Dosage: 80 MILLIGRAM DAILY; UNIT DOSE : 40 MG
  16. AZITHROMYCIN ANHYDROUS. [Interacting]
     Active Substance: AZITHROMYCIN ANHYDROUS
     Dosage: 500 MILLIGRAM DAILY;
     Route: 042
  17. ACCORD?UK CO?TRIMOXAZOLE [Concomitant]
     Active Substance: SULFAMETHOXAZOLE\TRIMETHOPRIM
     Dosage: 480 MILLIGRAM DAILY;
  18. DR REDDYS LABS UK CETIRIZINE [Concomitant]
     Dosage: 10 MILLIGRAM DAILY; EACH MORNING
  19. MORPHINE SULFATE. [Concomitant]
     Active Substance: MORPHINE SULFATE
     Dosage: AFTER MEALS (PCA)
  20. ONDANSETRON HYDROCHLORIDE. [Concomitant]
     Active Substance: ONDANSETRON HYDROCHLORIDE
     Dosage: 12 MILLIGRAM DAILY; 4MG
     Route: 042
  21. PRAVASTATIN. [Concomitant]
     Active Substance: PRAVASTATIN
     Dosage: 40 MILLIGRAM DAILY; EACH NIGHT, HELD (PANCREATITIS).
  22. GABAPENTIN. [Concomitant]
     Active Substance: GABAPENTIN
     Dosage: 600 MILLIGRAM DAILY; UNIT DOSE : 300 MG
  23. AZITHROMYCIN ANHYDROUS. [Suspect]
     Active Substance: AZITHROMYCIN ANHYDROUS
     Dosage: 500 MILLIGRAM DAILY;
     Route: 048
     Dates: start: 20200130
  24. AVIBACTAM [Interacting]
     Active Substance: AVIBACTAM
     Dosage: 3.75 GRAM DAILY; UNIT DOSE : 1.25 G
     Route: 042
  25. OMEPRAZOLE SODIUM [Concomitant]
     Active Substance: OMEPRAZOLE SODIUM
  26. RANITIDINE. [Concomitant]
     Active Substance: RANITIDINE
     Dosage: 600 MILLIGRAM DAILY; UNIT DOSE : 300 MG
  27. PARACETAMOL [Concomitant]
     Active Substance: ACETAMINOPHEN
     Dosage: 4 GRAM DAILY; UNIT DOSE : 1 GRAM
  28. CEFTAZIDIME. [Interacting]
     Active Substance: CEFTAZIDIME
     Dosage: 4.5 GRAM DAILY; UNIT DOSE : 1.5 GRAM
     Dates: start: 20200131
  29. MEROPENEM. [Interacting]
     Active Substance: MEROPENEM
     Dosage: 6 GRAM DAILY; UNIT DOSE : 2 GRAM
  30. NYSTATIN. [Concomitant]
     Active Substance: NYSTATIN
     Dosage: 4 ML DAILY; 1ML
  31. RAMIPRIL. [Concomitant]
     Active Substance: RAMIPRIL
     Dosage: 2.5 MILLIGRAM DAILY; EACH NIGHT (ON).
  32. AVIBACTAM [Interacting]
     Active Substance: AVIBACTAM
     Dosage: 4.5 GRAM DAILY; UNIT DOSE : 1.5 GRAM
     Dates: start: 20200131
  33. ADOPORT [Concomitant]
     Active Substance: TACROLIMUS
     Dosage: 6 MILLIGRAM DAILY; UNIT DOSE : 3 MG
  34. AVIBACTAM [Interacting]
     Active Substance: AVIBACTAM
     Dosage: 7.5 GRAM DAILY; UNIT DOSE : 2.5 GRAM
  35. PREDNISONE. [Concomitant]
     Active Substance: PREDNISONE
     Dosage: 15 MILLIGRAM DAILY; REDUCED TO 10MG OM ON ADMISSION.
  36. DOSULEPIN HYDROCHLORIDE [Concomitant]
     Active Substance: DOTHIEPIN HYDROCHLORIDE
     Indication: DEPRESSION
     Dosage: 150 MILLIGRAM DAILY; REDUCED TO 75MG OD ON ADMISSION.

REACTIONS (7)
  - Nausea [Not Recovered/Not Resolved]
  - Pulseless electrical activity [Fatal]
  - Drug interaction [Unknown]
  - Abdominal pain upper [Not Recovered/Not Resolved]
  - Cardiac arrest [Fatal]
  - Pancreatitis acute [Fatal]
  - Abdominal pain [Not Recovered/Not Resolved]

NARRATIVE: CASE EVENT DATE: 20200205
